FAERS Safety Report 12827701 (Version 4)
Quarter: 2019Q1

REPORT INFORMATION
  Report Type: Spontaneous
  Country: FR (occurrence: FR)
  Receive Date: 20161006
  Receipt Date: 20190215
  Transmission Date: 20190417
  Serious: Yes (Death, Hospitalization, Other)
  Sender: FDA-Public Use
  Company Number: FR-GILEAD-2016-0236742

PATIENT
  Age: 73 Year
  Sex: Male

DRUGS (5)
  1. ZYDELIG [Suspect]
     Active Substance: IDELALISIB
     Dosage: 300 MG, QD
     Route: 048
  2. ZYDELIG [Suspect]
     Active Substance: IDELALISIB
     Indication: CHRONIC LYMPHOCYTIC LEUKAEMIA
     Dosage: 150 MG, BID
     Route: 048
     Dates: start: 201410, end: 201503
  3. ZYDELIG [Suspect]
     Active Substance: IDELALISIB
     Indication: B-CELL LYMPHOMA
     Dosage: 150 MG, BID
     Route: 048
     Dates: end: 201506
  4. MABTHERA [Concomitant]
     Active Substance: RITUXIMAB
     Dosage: 1 DF, Q1WK
     Route: 042
     Dates: start: 201410, end: 201412
  5. ZYDELIG [Suspect]
     Active Substance: IDELALISIB
     Dosage: 100 MG, BID
     Route: 048

REACTIONS (6)
  - Diarrhoea [Recovered/Resolved]
  - Bronchopneumopathy [Fatal]
  - Lung disorder [Unknown]
  - Pneumonitis [Recovered/Resolved]
  - Sinusitis [Not Recovered/Not Resolved]
  - Pneumonitis [Recovering/Resolving]

NARRATIVE: CASE EVENT DATE: 201503
